FAERS Safety Report 5924729-9 (Version None)
Quarter: 2008Q4

REPORT INFORMATION
  Report Type: 
  Country: None (occurrence: None)
  Receive Date: 20081016
  Receipt Date: 20080109
  Transmission Date: 20090506
  Serious: Yes (Hospitalization, Other)
  Sender: FDA-Public Use
  Company Number: TPA2007A02464

PATIENT
  Age: 57 Year
  Sex: Male
  Weight: 99.7913 kg

DRUGS (10)
  1. PIOGLITAZONE HCL [Suspect]
     Indication: CARDIOVASCULAR EVENT PROPHYLAXIS
     Dosage: 1 IN 1 D, PER ORAL
     Route: 048
     Dates: start: 20060413
  2. COUMADIN [Concomitant]
  3. ZOCOR [Concomitant]
  4. ZOLOFT [Concomitant]
  5. PLAQUENIL [Concomitant]
  6. CADUET (ATORVASTATIN CALCIUM, AMLODIPINE BESILATE) [Concomitant]
  7. LISINIOPRIL(LISINOPRIL) [Concomitant]
  8. BENICAR [Concomitant]
  9. BENICAR [Concomitant]
  10. ASPIRIN [Concomitant]

REACTIONS (6)
  - ACETABULUM FRACTURE [None]
  - ANAEMIA [None]
  - FALL [None]
  - ILIUM FRACTURE [None]
  - PELVIC FRACTURE [None]
  - RIB FRACTURE [None]
